FAERS Safety Report 16168832 (Version 1)
Quarter: 2019Q2

REPORT INFORMATION
  Report Type: Spontaneous
  Country: US (occurrence: US)
  Receive Date: 20190408
  Receipt Date: 20190408
  Transmission Date: 20190711
  Serious: No
  Sender: FDA-Public Use
  Company Number: US-JNJFOC-20190328718

PATIENT
  Age: 12 Month
  Sex: Female

DRUGS (2)
  1. MOTRIN INFANTS [Suspect]
     Active Substance: IBUPROFEN
     Indication: NASOPHARYNGITIS
     Route: 048
  2. MOTRIN INFANTS [Suspect]
     Active Substance: IBUPROFEN
     Route: 048

REACTIONS (1)
  - Product administration error [Unknown]
